FAERS Safety Report 6025527-0 (Version None)
Quarter: 2008Q4

REPORT INFORMATION
  Report Type: 
  Country: None (occurrence: None)
  Receive Date: 20081224
  Receipt Date: 20081215
  Transmission Date: 20090506
  Serious: Yes (Death, Life-Threatening)
  Sender: FDA-Public Use
  Company Number: 2008EU002969

PATIENT
  Age: 35 Year
  Sex: Male

DRUGS (3)
  1. PROTOPIC [Suspect]
     Dosage: TOPICAL ; TOPICAL ; TOPICAL
     Route: 061
     Dates: start: 20060101
  2. PROTOPIC [Suspect]
     Dosage: TOPICAL ; TOPICAL ; TOPICAL
     Route: 061
     Dates: start: 20060401
  3. PROTOPIC [Suspect]
     Dosage: TOPICAL ; TOPICAL ; TOPICAL
     Route: 061
     Dates: start: 20060901

REACTIONS (3)
  - MYCOSIS FUNGOIDES [None]
  - RED BLOOD CELL COUNT DECREASED [None]
  - T-CELL LYMPHOMA [None]
